FAERS Safety Report 14679160 (Version 3)
Quarter: 2018Q2

REPORT INFORMATION
  Report Type: Spontaneous
  Country: US (occurrence: US)
  Receive Date: 20180326
  Receipt Date: 20180514
  Transmission Date: 20180711
  Serious: No
  Sender: FDA-Public Use
  Company Number: US-PFIZER INC-2018119944

PATIENT
  Age: 50 Year
  Sex: Female
  Weight: 70.76 kg

DRUGS (9)
  1. LYRICA [Suspect]
     Active Substance: PREGABALIN
     Indication: FIBROMYALGIA
     Dosage: 75 MG, 2X/DAY
     Route: 048
     Dates: start: 20180104
  2. KEPPRA [Concomitant]
     Active Substance: LEVETIRACETAM
     Indication: TEMPORAL LOBE EPILEPSY
  3. VITAMIN D [Concomitant]
     Active Substance: CHOLECALCIFEROL
     Indication: VITAMIN D DECREASED
     Dosage: 1000 IU, DAILY (EVERY MORNING)
     Route: 048
     Dates: start: 201709
  4. NISTATIN [Concomitant]
     Active Substance: NYSTATIN
     Indication: FUNGAL INFECTION
     Dosage: ONE APPLICATION, AS NEEDED (2 TO 3 TIMES A DAY AS NEEDED)
  5. KEPPRA [Concomitant]
     Active Substance: LEVETIRACETAM
     Indication: SEIZURE
     Dosage: 750 MG, 2X/DAY
     Route: 048
     Dates: start: 201709
  6. VITAFUSION WOMEN^S [Concomitant]
     Dosage: 2 DF, DAILY (2 CHEWABLE GUMMIES BY MOUTH EVERY MORNING)
     Route: 048
     Dates: start: 201709
  7. BABY ASPIRIN [Concomitant]
     Active Substance: ASPIRIN
     Indication: NON-CARDIAC CHEST PAIN
     Dosage: 81 MG, 1X/DAY
     Route: 048
     Dates: start: 201801
  8. MELOXICAM. [Concomitant]
     Active Substance: MELOXICAM
     Indication: OSTEOARTHRITIS
     Dosage: 15 MG, DAILY (ONCE EVERY 24 HOURS)
     Route: 048
     Dates: start: 201709
  9. XANAX [Concomitant]
     Active Substance: ALPRAZOLAM
     Indication: TREMOR
     Dosage: 0.5 MG, AS NEEDED (0.50MG TABLET. ONE TABLET EVERY 12 HOURS AS NEEDED BY MOUTH)
     Route: 048
     Dates: start: 20170816

REACTIONS (1)
  - Drug effect incomplete [Unknown]

NARRATIVE: CASE EVENT DATE: 201801
